FAERS Safety Report 15962740 (Version 2)
Quarter: 2019Q2

REPORT INFORMATION
  Report Type: Spontaneous
  Country: DE (occurrence: DE)
  Receive Date: 20190214
  Receipt Date: 20190417
  Transmission Date: 20190711
  Serious: Yes (Hospitalization, Other)
  Sender: FDA-Public Use
  Company Number: DE-TEVA-2019-DE-1010683

PATIENT
  Sex: Female

DRUGS (10)
  1. VIGANTOL 1000 I.E. VITAMIN D3 TABLETTEN [Concomitant]
     Dosage: 1 DOSAGE FORMS DAILY; 1-0-0-0
  2. HUMALOG 100 EINHEITEN/ML [Concomitant]
     Dosage: 21 IU (INTERNATIONAL UNIT) DAILY; 10-8-3-0
  3. DECORTIN H 1 MG TABLETTEN [Concomitant]
     Dosage: 10 MILLIGRAM DAILY; 2-0-0-0
  4. FERRO SANOL DUODENAL 100MG HARTKAPSELN [Concomitant]
     Dosage: 100 MILLIGRAM DAILY; 1-0-0-0
  5. METHOTREXAT [Suspect]
     Active Substance: METHOTREXATE
     Dosage: PAUSED
     Route: 065
  6. FOLSAN 5MG [Concomitant]
     Dosage: 5 MILLIGRAM, 1 WEEK , 1-0-0-0 1 X/WEEK
  7. OMEBETA 40 MG [Concomitant]
     Dosage: 40 MILLIGRAM DAILY; 1-0-0-0
  8. CLEXANE 4.000 I. E. (40 MG)/0,4 ML [Concomitant]
     Dosage: 1 DOSAGE FORMS DAILY; 0-0-0-1
  9. L-THYROXIN 75 - 1 A PHARMA [Concomitant]
     Dosage: 75 MICROGRAM DAILY; 1-0-0-0
  10. LANTUS 100 EINHEITEN/ML INJEKTIONSL?SUNG IN EINER DURCHSTECHFLASCHE [Concomitant]
     Dosage: 8 IU (INTERNATIONAL UNIT) DAILY; 0-0-0-8

REACTIONS (6)
  - Product administration error [Unknown]
  - Toxicity to various agents [Unknown]
  - Mucosal inflammation [Unknown]
  - Inappropriate schedule of product administration [Unknown]
  - Pancytopenia [Unknown]
  - Accidental overdose [Unknown]
